FAERS Safety Report 10450660 (Version 1)
Quarter: 2014Q3

REPORT INFORMATION
  Report Type: Spontaneous
  Country: DE (occurrence: DE)
  Receive Date: 20140912
  Receipt Date: 20140912
  Transmission Date: 20150326
  Serious: Yes (Hospitalization)
  Sender: FDA-Public Use
  Company Number: DE-SA-2014SA124347

PATIENT
  Age: 81 Year
  Sex: Male
  Weight: 84.6 kg

DRUGS (4)
  1. CLEXANE [Suspect]
     Active Substance: ENOXAPARIN SODIUM
     Route: 065
  2. INVESTIGATIONAL DRUG [Suspect]
     Active Substance: INVESTIGATIONAL PRODUCT
     Indication: DEMENTIA ALZHEIMER^S TYPE
     Dosage: DOSE:10 MICROGRAM(S)/MILLILITRE
     Route: 030
     Dates: start: 20100324, end: 20100324
  3. MULTAQ [Suspect]
     Active Substance: DRONEDARONE
     Route: 065
  4. DIGIMERCK [Suspect]
     Active Substance: DIGITOXIN
     Route: 065

REACTIONS (1)
  - Atrial fibrillation [Recovered/Resolved with Sequelae]

NARRATIVE: CASE EVENT DATE: 20100921
